FAERS Safety Report 18216429 (Version 1)
Quarter: 2020Q3

REPORT INFORMATION
  Report Type: Spontaneous
  Country: CA (occurrence: CA)
  Receive Date: 20200901
  Receipt Date: 20200901
  Transmission Date: 20201103
  Serious: Yes (Life-Threatening, Hospitalization, Other)
  Sender: FDA-Public Use
  Company Number: CA-TEVA-2020-CA-1819895

PATIENT
  Age: 69 Year
  Sex: Male

DRUGS (4)
  1. NOVO?CLOPIDOGREL [Suspect]
     Active Substance: CLOPIDOGREL BISULFATE
     Indication: CORONARY ARTERY BYPASS
     Dosage: 75 MILLIGRAM DAILY;
     Route: 048
  2. JAMP ASA 81MG EC [Suspect]
     Active Substance: ASPIRIN
     Indication: CORONARY ARTERY BYPASS
     Dosage: 81 MILLIGRAM DAILY;
     Route: 048
  3. NOVO?CLOPIDOGREL [Suspect]
     Active Substance: CLOPIDOGREL BISULFATE
     Indication: ANTIPLATELET THERAPY
  4. JAMP ASA 81MG EC [Suspect]
     Active Substance: ASPIRIN
     Indication: ANTIPLATELET THERAPY

REACTIONS (2)
  - Vascular pseudoaneurysm [Recovered/Resolved]
  - Gastrointestinal haemorrhage [Recovered/Resolved]
